FAERS Safety Report 5486819-7 (Version None)
Quarter: 2007Q4

REPORT INFORMATION
  Report Type: 
  Country: None (occurrence: None)
  Receive Date: 20071012
  Receipt Date: 20071012
  Transmission Date: 20080405
  Serious: Yes (Life-Threatening, Hospitalization)
  Sender: FDA-Public Use
  Company Number: None

PATIENT
  Age: 51 Year
  Sex: Male
  Weight: 92 kg

DRUGS (1)
  1. DECADRON [Suspect]
     Indication: NON-HODGKIN'S LYMPHOMA
     Dosage: 40MG PO DAYS 1-4 EVERY 21 DAYS
     Route: 048
     Dates: start: 20070503, end: 20070822

REACTIONS (4)
  - CONFUSIONAL STATE [None]
  - HYPERGLYCAEMIA [None]
  - NEUROLOGICAL SYMPTOM [None]
  - PLATELET COUNT ABNORMAL [None]
